FAERS Safety Report 11807505 (Version 2)
Quarter: 2016Q1

REPORT INFORMATION
  Report Type: Spontaneous
  Country: US (occurrence: US)
  Receive Date: 20151207
  Receipt Date: 20160125
  Transmission Date: 20160525
  Serious: Yes (Other)
  Sender: FDA-Public Use
  Company Number: US-BAYER-2015-475912

PATIENT
  Age: 81 Year
  Sex: Male
  Weight: 68.93 kg

DRUGS (4)
  1. AFRIN NO DRIP SEVERE CONGESTION [Suspect]
     Active Substance: OXYMETAZOLINE HYDROCHLORIDE
     Indication: NASAL CONGESTION
     Dosage: 2 PUFF(S), QD
     Route: 045
     Dates: start: 1995
  2. CYCLOSPORINE. [Concomitant]
     Active Substance: CYCLOSPORINE
     Dosage: UNK
  3. OXYCODONE [Concomitant]
     Active Substance: OXYCODONE
     Dosage: UNK UNK, BID
  4. MYFORTIC [Concomitant]
     Active Substance: MYCOPHENOLATE SODIUM
     Dosage: UNK

REACTIONS (4)
  - Drug effect incomplete [None]
  - Gastrectomy [Recovered/Resolved]
  - Renal transplant [Recovered/Resolved]
  - Product use issue [None]

NARRATIVE: CASE EVENT DATE: 1996
